FAERS Safety Report 20009311 (Version 2)
Quarter: 2021Q4

REPORT INFORMATION
  Report Type: Spontaneous
  Country: DE (occurrence: DE)
  Receive Date: 20211028
  Receipt Date: 20211119
  Transmission Date: 20220303
  Serious: Yes (Other)
  Sender: FDA-Public Use
  Company Number: DE-TEVA-2021-DE-1969094

PATIENT
  Age: 70 Year
  Sex: Female
  Weight: 80 kg

DRUGS (17)
  1. METOPROLOL [Suspect]
     Active Substance: METOPROLOL
     Indication: Hypertension
     Dosage: 47.5 MILLIGRAM DAILY; ON EVENING
     Route: 065
  2. METFORMIN [Suspect]
     Active Substance: METFORMIN HYDROCHLORIDE
     Indication: Type 2 diabetes mellitus
     Dosage: 0.5 TABLET MORNING AND 0.5 TABLET EVENING. INCORRECTLY ADMINISTERED DRUG ON AN EMPTY STOMACH
     Route: 048
  3. LEVOTHYROXINE [Suspect]
     Active Substance: LEVOTHYROXINE
     Indication: Hypoparathyroidism
     Dosage: 125 MICROGRAM DAILY;
     Route: 065
  4. EXEMESTANE [Suspect]
     Active Substance: EXEMESTANE
     Indication: Breast cancer
     Dosage: 25 MILLIGRAM DAILY;
     Route: 065
     Dates: start: 2015
  5. NALOXONE HYDROCHLORIDE\OXYCODONE HYDROCHLORIDE [Suspect]
     Active Substance: NALOXONE HYDROCHLORIDE\OXYCODONE HYDROCHLORIDE
     Indication: Back pain
     Route: 065
  6. NALOXONE HYDROCHLORIDE\OXYCODONE HYDROCHLORIDE [Suspect]
     Active Substance: NALOXONE HYDROCHLORIDE\OXYCODONE HYDROCHLORIDE
     Indication: Arthralgia
  7. DOXORUBICIN [Suspect]
     Active Substance: DOXORUBICIN
     Indication: Breast cancer
     Route: 065
  8. EMPAGLIFLOZIN [Suspect]
     Active Substance: EMPAGLIFLOZIN
     Indication: Type 2 diabetes mellitus
     Dosage: 10 MILLIGRAM DAILY; GIVEN IN MORNING
     Route: 065
  9. ENALAPRIL [Concomitant]
     Active Substance: ENALAPRIL
     Indication: Hypertension
     Dosage: 5 MILLIGRAM DAILY;
     Route: 065
  10. XIPAMIDE [Concomitant]
     Active Substance: XIPAMIDE
     Indication: Hypertension
     Dosage: 10 MG 2 TIMES IN MORNING
     Route: 065
  11. ATORVASTATIN [Concomitant]
     Active Substance: ATORVASTATIN
     Indication: Atrial flutter
     Route: 065
  12. ALLOPURINOL [Concomitant]
     Active Substance: ALLOPURINOL
     Indication: Gout
     Dosage: 100 MILLIGRAM DAILY;
     Route: 065
  13. PREGABALIN [Concomitant]
     Active Substance: PREGABALIN
     Indication: Restless legs syndrome
     Route: 065
  14. POLYETHYLENE GLYCOLS [Concomitant]
     Active Substance: POLYETHYLENE GLYCOLS
     Indication: Product used for unknown indication
     Route: 065
  15. IODINE [Concomitant]
     Active Substance: IODINE
     Indication: Hypoparathyroidism
     Dosage: 100 MILLIGRAM DAILY;
     Route: 065
  16. DICLOFENAC [Concomitant]
     Active Substance: DICLOFENAC
     Indication: Back pain
     Route: 065
  17. DICLOFENAC [Concomitant]
     Active Substance: DICLOFENAC
     Indication: Arthralgia

REACTIONS (14)
  - Congestive cardiomyopathy [Unknown]
  - Hypoglycaemia [Unknown]
  - Nausea [Unknown]
  - Dizziness [Unknown]
  - Product administration error [Unknown]
  - Insomnia [Unknown]
  - Hyperthyroidism [Unknown]
  - Overdose [Unknown]
  - Symptom masked [Unknown]
  - Hypotension [Unknown]
  - Mood swings [Unknown]
  - Hot flush [Unknown]
  - Drug withdrawal syndrome [Unknown]
  - Fall [Unknown]
